FAERS Safety Report 7520482-6 (Version None)
Quarter: 2011Q2

REPORT INFORMATION
  Report Type: 
  Country: None (occurrence: None)
  Receive Date: 20110602
  Receipt Date: 20110525
  Transmission Date: 20111010
  Serious: Yes (Other)
  Sender: FDA-Public Use
  Company Number: JP-GENENTECH-319651

PATIENT
  Age: 80 Year
  Sex: Female

DRUGS (5)
  1. GRTPA [Suspect]
     Indication: EMBOLIC STROKE
     Dosage: 15 MIU, UNK
     Route: 042
     Dates: start: 20100820, end: 20100820
  2. RADICUT [Concomitant]
     Indication: PRODUCT USED FOR UNKNOWN INDICATION
     Dosage: 60 MG, QD
     Route: 041
     Dates: start: 20100820, end: 20100823
  3. HEPARIN SODIUM [Concomitant]
     Indication: PRODUCT USED FOR UNKNOWN INDICATION
     Dosage: UNK
     Route: 041
     Dates: start: 20100820, end: 20100823
  4. DIURETIC (UNK INGREDIENTS) [Concomitant]
     Indication: PRODUCT USED FOR UNKNOWN INDICATION
     Dosage: UNK
  5. VASODILATORS NOS [Concomitant]
     Indication: PRODUCT USED FOR UNKNOWN INDICATION
     Dosage: UNK

REACTIONS (1)
  - MUSCLE HAEMORRHAGE [None]
